FAERS Safety Report 9690489 (Version 1)
Quarter: 2013Q4

REPORT INFORMATION
  Report Type: Spontaneous
  Country: NL (occurrence: NL)
  Receive Date: 20131115
  Receipt Date: 20131115
  Transmission Date: 20140711
  Serious: Yes (Hospitalization)
  Sender: FDA-Public Use
  Company Number: NL-009507513-1311NLD004637

PATIENT
  Age: 29 Year
  Sex: Female
  Weight: 85 kg

DRUGS (4)
  1. AMITRIPTYLINE HYDROCHLORIDE [Suspect]
     Dosage: 25 MG, QD
     Dates: start: 20130614
  2. LYRICA [Suspect]
     Indication: HEADACHE
     Dosage: 75 MG, QD
     Route: 048
     Dates: start: 20130613, end: 20130614
  3. TOCILIZUMAB [Suspect]
     Indication: RHEUMATOID ARTHRITIS
     Dosage: STRENGTH: 20 MG/ML
     Route: 042
     Dates: start: 20130611, end: 20130612
  4. METHOTREXATE [Concomitant]
     Dosage: 2.5 MG, UNK
     Dates: start: 20110316

REACTIONS (1)
  - Angioedema [Recovered/Resolved]
